FAERS Safety Report 5453823-4 (Version None)
Quarter: 2007Q3

REPORT INFORMATION
  Report Type: 
  Country: None (occurrence: None)
  Receive Date: 20070917
  Receipt Date: 20070910
  Transmission Date: 20080115
  Serious: Yes (Hospitalization)
  Sender: FDA-Public Use
  Company Number: A0680166A

PATIENT
  Age: 62 Year
  Sex: Female

DRUGS (3)
  1. FLONASE [Suspect]
     Indication: ASTHMA
     Dosage: 2PUFF PER DAY
     Route: 045
     Dates: start: 20070706
  2. ASTHMA MEDICATION [Concomitant]
  3. ANTI-PARKINSON'S DISEASE MEDICATION [Concomitant]

REACTIONS (4)
  - ASTHMA [None]
  - DRUG INEFFECTIVE [None]
  - LOSS OF CONSCIOUSNESS [None]
  - NASAL CONGESTION [None]
